FAERS Safety Report 8505999-X (Version None)
Quarter: 2012Q3

REPORT INFORMATION
  Report Type: 
  Country: None (occurrence: None)
  Receive Date: 20120712
  Receipt Date: 20120629
  Transmission Date: 20120928
  Serious: Yes (Other)
  Sender: FDA-Public Use
  Company Number: NL-GLAXOSMITHKLINE-B0813896A

PATIENT
  Age: 18 Year
  Sex: Male

DRUGS (1)
  1. PAROXETINE [Suspect]
     Indication: DEPRESSION
     Dosage: 20MG PER DAY

REACTIONS (4)
  - DIZZINESS [None]
  - NAUSEA [None]
  - MIGRAINE [None]
  - BLOOD BILIRUBIN INCREASED [None]
